FAERS Safety Report 7725960-2 (Version None)
Quarter: 2011Q3

REPORT INFORMATION
  Report Type: 
  Country: None (occurrence: None)
  Receive Date: 20110902
  Receipt Date: 20110822
  Transmission Date: 20111222
  Serious: Yes (Other)
  Sender: FDA-Public Use
  Company Number: US-ELI_LILLY_AND_COMPANY-US201103008943

PATIENT
  Sex: Female

DRUGS (5)
  1. FORTEO [Suspect]
     Dosage: 20 UG, QD
     Route: 065
  2. FORTEO [Suspect]
     Dosage: 20 UG, QD
  3. FORTEO [Suspect]
     Indication: OSTEOPOROSIS
     Dosage: 20 UG, QD
     Route: 065
     Dates: start: 20110320
  4. FORTEO [Suspect]
     Dosage: 20 UG, QD
     Route: 065
  5. FORTEO [Suspect]
     Dosage: 20 UG, QD
     Route: 065

REACTIONS (14)
  - DYSPNOEA [None]
  - VISUAL IMPAIRMENT [None]
  - AXILLARY PAIN [None]
  - DRUG DOSE OMISSION [None]
  - BACK PAIN [None]
  - BONE PAIN [None]
  - MUSCULOSKELETAL CHEST PAIN [None]
  - PAPILLOEDEMA [None]
  - ANXIETY [None]
  - INADEQUATE ANALGESIA [None]
  - CHEST PAIN [None]
  - PAIN [None]
  - FATIGUE [None]
  - DISCOMFORT [None]
